FAERS Safety Report 8161200-0 (Version None)
Quarter: 2012Q1

REPORT INFORMATION
  Report Type: 
  Country: None (occurrence: None)
  Receive Date: 20120103
  Receipt Date: 20111118
  Transmission Date: 20120608
  Serious: No
  Sender: FDA-Public Use
  Company Number: AE-2011-003782

PATIENT
  Age: 52 Year
  Sex: Female

DRUGS (3)
  1. RIBAVIRIN (RIVAVIRIN) [Concomitant]
  2. INCIVEK [Suspect]
     Dosage: 2250 MG (750 MG, 3 IN1  D)
     Dates: start: 20111028
  3. PEGASYS [Concomitant]

REACTIONS (3)
  - DISCOMFORT [None]
  - INFLUENZA LIKE ILLNESS [None]
  - RASH PRURITIC [None]
